FAERS Safety Report 20693673 (Version 1)
Quarter: 2022Q2

REPORT INFORMATION
  Report Type: Spontaneous
  Country: US (occurrence: US)
  Receive Date: 20220411
  Receipt Date: 20220411
  Transmission Date: 20220721
  Serious: Yes (Other)
  Sender: FDA-Public Use
  Company Number: US-PFIZER INC-202200499293

PATIENT
  Age: 58 Year
  Sex: Female
  Weight: 45.714 kg

DRUGS (4)
  1. CHANTIX [Suspect]
     Active Substance: VARENICLINE TARTRATE
     Indication: Smoking cessation therapy
     Dosage: 0.5 MG, 2X/DAY (FOR 7 DAYS)
     Route: 048
  2. CHANTIX [Suspect]
     Active Substance: VARENICLINE TARTRATE
     Dosage: 1 MG, 2X/DAY
     Route: 048
  3. GABAPENTIN [Suspect]
     Active Substance: GABAPENTIN
     Indication: Spinal osteoarthritis
     Dosage: 300 MG, 3X/DAY
     Route: 048
  4. GABAPENTIN [Suspect]
     Active Substance: GABAPENTIN
     Dosage: 600 MG, 3X/DAY

REACTIONS (11)
  - Syncope [Unknown]
  - Dizziness [Unknown]
  - Head injury [Unknown]
  - Loss of consciousness [Unknown]
  - Fall [Unknown]
  - Headache [Unknown]
  - Pain [Unknown]
  - Raynaud^s phenomenon [Unknown]
  - Visual impairment [Unknown]
  - Product prescribing error [Unknown]
  - Off label use [Unknown]

NARRATIVE: CASE EVENT DATE: 20000101
